FAERS Safety Report 15591764 (Version 1)
Quarter: 2018Q4

REPORT INFORMATION
  Report Type: Spontaneous
  Country: US (occurrence: US)
  Receive Date: 20181106
  Receipt Date: 20181106
  Transmission Date: 20190205
  Serious: No
  Sender: FDA-Public Use
  Company Number: None

PATIENT
  Age: 61 Year
  Sex: Female

DRUGS (5)
  1. IBUPROFEN. [Concomitant]
     Active Substance: IBUPROFEN
  2. LISINOPRIL. [Concomitant]
     Active Substance: LISINOPRIL
  3. NYSTATIN. [Concomitant]
     Active Substance: NYSTATIN
  4. OLUMIANT [Suspect]
     Active Substance: BARICITINIB
     Indication: RHEUMATOID ARTHRITIS
     Route: 048
  5. VITAMIN D [Concomitant]
     Active Substance: CHOLECALCIFEROL

REACTIONS (3)
  - Constipation [None]
  - Bronchitis [None]
  - Abdominal pain upper [None]

NARRATIVE: CASE EVENT DATE: 20181008
